FAERS Safety Report 19597047 (Version 2)
Quarter: 2021Q3

REPORT INFORMATION
  Report Type: Report from Study
  Country: US (occurrence: US)
  Receive Date: 20210723
  Receipt Date: 20210928
  Transmission Date: 20211014
  Serious: Yes (Hospitalization)
  Sender: FDA-Public Use
  Company Number: US-ACADIA PHARMACEUTICALS INC.-ACA-2021-PIM-002710

PATIENT
  Age: 75 Year
  Sex: Male

DRUGS (8)
  1. VITAMIN B12 [Concomitant]
     Active Substance: CYANOCOBALAMIN
  2. NEUPRO [Concomitant]
     Active Substance: ROTIGOTINE
  3. NUPLAZID [Suspect]
     Active Substance: PIMAVANSERIN TARTRATE
     Indication: PARKINSON^S DISEASE
     Dosage: 34 MILLIGRAM, QD
     Route: 048
     Dates: start: 20190611
  4. DOXYCYCLINE HYCLATE. [Concomitant]
     Active Substance: DOXYCYCLINE HYCLATE
  5. RAZADYNE ER [Concomitant]
     Active Substance: GALANTAMINE HYDROBROMIDE
  6. NUPLAZID [Suspect]
     Active Substance: PIMAVANSERIN TARTRATE
     Dosage: 34 MILLIGRAM, QD
     Route: 048
     Dates: start: 20200828
  7. DONEPEZIL. [Concomitant]
     Active Substance: DONEPEZIL
  8. CARBIDOPA. [Concomitant]
     Active Substance: CARBIDOPA

REACTIONS (2)
  - Product dose omission issue [Unknown]
  - Dehydration [Unknown]

NARRATIVE: CASE EVENT DATE: 2021
